FAERS Safety Report 4356363-9 (Version None)
Quarter: 2004Q2

REPORT INFORMATION
  Report Type: 
  Country: None (occurrence: None)
  Receive Date: 20040511
  Receipt Date: 20040511
  Transmission Date: 20050107
  Serious: Yes (Hospitalization)
  Sender: FDA-Public Use
  Company Number: None

PATIENT
  Age: 68 Year
  Sex: Male
  Weight: 68.0396 kg

DRUGS (2)
  1. CISPLATIN [Suspect]
     Indication: LUNG NEOPLASM MALIGNANT
     Dosage: 91 INTRAVENOUS
     Route: 042
     Dates: start: 20040419, end: 20040419
  2. ETOPOSIDE [Suspect]
     Indication: LUNG NEOPLASM MALIGNANT
     Dosage: 91 IV
     Route: 042
     Dates: start: 20040419, end: 20040423

REACTIONS (4)
  - CHEST PAIN [None]
  - DYSPHAGIA [None]
  - MARKEDLY REDUCED DIETARY INTAKE [None]
  - PHARYNGOLARYNGEAL PAIN [None]
